FAERS Safety Report 19921244 (Version 2)
Quarter: 2021Q4

REPORT INFORMATION
  Report Type: Other
  Country: CA (occurrence: CA)
  Receive Date: 20211006
  Receipt Date: 20211213
  Transmission Date: 20220303
  Serious: Yes (Hospitalization, Other)
  Sender: FDA-Public Use
  Company Number: CA-CELLTRION INC.-2021CA013295

PATIENT

DRUGS (18)
  1. TRASTUZUMAB [Suspect]
     Active Substance: TRASTUZUMAB
     Indication: Metastatic salivary gland cancer
     Dosage: 340 MILLIGRAM
     Route: 042
  2. TRASTUZUMAB [Suspect]
     Active Substance: TRASTUZUMAB
     Dosage: 480 MILLIGRAM
     Route: 042
  3. KADCYLA [Suspect]
     Active Substance: ADO-TRASTUZUMAB EMTANSINE
     Indication: Metastatic salivary gland cancer
     Dosage: 255.0 MILLIGRAM
     Route: 042
  4. KADCYLA [Suspect]
     Active Substance: ADO-TRASTUZUMAB EMTANSINE
     Indication: Metastatic salivary gland cancer
     Dosage: 255 MG
     Route: 042
  5. AMOXICILLIN AND CLAVULANATE POTASSIUM [Concomitant]
     Active Substance: AMOXICILLIN\CLAVULANATE POTASSIUM
     Dosage: UNK
     Route: 042
  6. AMOXICILLIN AND CLAVULANATE POTASSIUM [Concomitant]
     Active Substance: AMOXICILLIN\CLAVULANATE POTASSIUM
     Dosage: UNK
     Route: 048
  7. CAPECITABINE [Concomitant]
     Active Substance: CAPECITABINE
     Indication: Chemotherapy
     Dosage: 2500.0 MILLIGRAM CYCLICAL
     Route: 048
  8. DILAUDID [Concomitant]
     Active Substance: HYDROMORPHONE HYDROCHLORIDE
  9. HYDROMORPHONE [Concomitant]
     Active Substance: HYDROMORPHONE
  10. POLYETHYLENE GLYCOL 3350 [Concomitant]
     Active Substance: POLYETHYLENE GLYCOL 3350
  11. LOPERAMIDE [Concomitant]
     Active Substance: LOPERAMIDE
     Indication: Diarrhoea
     Dosage: 2 MILLIGRAM
     Route: 048
  12. PANTOPRAZOLE SODIUM [Concomitant]
     Active Substance: PANTOPRAZOLE SODIUM
  13. PROCHLORPERAZINE [Concomitant]
     Active Substance: PROCHLORPERAZINE
     Indication: Vomiting
     Dosage: 10 MILLIGRAM
     Route: 048
  14. PROCHLORPERAZINE [Concomitant]
     Active Substance: PROCHLORPERAZINE
     Indication: Nausea
  15. SENOKOT [Concomitant]
     Active Substance: SENNOSIDES
  16. TYLENOL [Concomitant]
     Active Substance: ACETAMINOPHEN
  17. VALTREX [Concomitant]
     Active Substance: VALACYCLOVIR HYDROCHLORIDE
  18. ZOPICLONE [Concomitant]
     Active Substance: ZOPICLONE

REACTIONS (8)
  - Biliary tract disorder [Recovered/Resolved]
  - Weight decreased [Unknown]
  - Abdominal pain [Recovered/Resolved]
  - Biliary tract infection [Recovered/Resolved]
  - Sepsis [Recovered/Resolved]
  - Fatigue [Recovered/Resolved]
  - Off label use [Unknown]
  - Product use in unapproved indication [Unknown]
